FAERS Safety Report 20313012 (Version 1)
Quarter: 2022Q1

REPORT INFORMATION
  Report Type: Report from Study
  Country: FR (occurrence: FR)
  Receive Date: 20220109
  Receipt Date: 20220109
  Transmission Date: 20220424
  Serious: Yes (Life-Threatening, Other)
  Sender: FDA-Public Use
  Company Number: FR-AUROBINDO-AUR-APL-2022-000405

PATIENT
  Age: 19 Year
  Sex: Female

DRUGS (2)
  1. RISPERIDONE [Suspect]
     Active Substance: RISPERIDONE
     Indication: Product used for unknown indication
     Dosage: UNK
     Route: 048
  2. PALIPERIDONE PALMITATE [Suspect]
     Active Substance: PALIPERIDONE PALMITATE
     Indication: Product used for unknown indication
     Dosage: PALIPERIDONE PALMITATE ADMINISTERED EVERY 1 MONTHS, 75, 6/2 MILLIGRAM
     Route: 065

REACTIONS (2)
  - Hepatic necrosis [Recovered/Resolved with Sequelae]
  - Necrotising colitis [Recovered/Resolved with Sequelae]
